FAERS Safety Report 10742816 (Version 6)
Quarter: 2020Q2

REPORT INFORMATION
  Report Type: Report from Study
  Country: MX (occurrence: MX)
  Receive Date: 20150127
  Receipt Date: 20200602
  Transmission Date: 20200713
  Serious: Yes (Other)
  Sender: FDA-Public Use
  Company Number: PHHY2015MX009267

PATIENT
  Age: 85 Year
  Sex: Female
  Weight: 65 kg

DRUGS (15)
  1. CO-DIOVAN [Suspect]
     Active Substance: HYDROCHLOROTHIAZIDE\VALSARTAN
     Dosage: 1 DF(160/12.5 MG), QD
     Route: 048
  2. ASPIRINA [Concomitant]
     Active Substance: ASPIRIN
     Indication: PRODUCT USED FOR UNKNOWN INDICATION
     Route: 065
  3. CITALOPRAM [Concomitant]
     Active Substance: CITALOPRAM HYDROBROMIDE
     Indication: MAJOR DEPRESSION
     Dosage: 15 MG, Q24H
     Route: 048
     Dates: start: 20200111
  4. DIOVAN [Suspect]
     Active Substance: VALSARTAN
     Dosage: 1 DF, BID
     Route: 048
     Dates: start: 2012
  5. CLONAZEPAM. [Concomitant]
     Active Substance: CLONAZEPAM
     Indication: PRODUCT USED FOR UNKNOWN INDICATION
     Dosage: 0.3 MG, Q24H(INDICATION: GARDUAL REDUCTION DUE TO BENZODIAZIPINES USE)
     Route: 048
     Dates: start: 20200111
  6. EUTIROX [Concomitant]
     Active Substance: LEVOTHYROXINE SODIUM
     Indication: PRODUCT USED FOR UNKNOWN INDICATION
     Dosage: UNK
     Route: 065
  7. DIOVAN [Suspect]
     Active Substance: VALSARTAN
     Indication: HYPERTENSION
     Dosage: UNK
     Route: 065
     Dates: start: 20150805
  8. CO-DIOVAN [Suspect]
     Active Substance: HYDROCHLOROTHIAZIDE\VALSARTAN
     Dosage: 1 DF, BID
     Route: 048
     Dates: end: 2011
  9. OMEPRAZOLE. [Concomitant]
     Active Substance: OMEPRAZOLE
     Indication: PRODUCT USED FOR UNKNOWN INDICATION
     Dosage: UNK
     Route: 065
  10. DIOVAN [Suspect]
     Active Substance: VALSARTAN
     Indication: CARDIAC DISORDER
     Dosage: 1 DF, QD (STARTED 4 YEARS AGO)
     Route: 065
  11. DIOVAN [Suspect]
     Active Substance: VALSARTAN
     Dosage: 160 MG, QD
     Route: 048
  12. BUDESONIDE. [Concomitant]
     Active Substance: BUDESONIDE
     Indication: ASTHMA
     Dosage: 1 DF(INHALATION), Q24H
     Route: 055
     Dates: start: 202001
  13. ALPRAZOLAM. [Concomitant]
     Active Substance: ALPRAZOLAM
     Indication: ANXIETY
     Dosage: UNK
     Route: 065
  14. CO-DIOVAN [Suspect]
     Active Substance: HYDROCHLOROTHIAZIDE\VALSARTAN
     Indication: HYPERTENSION
     Dosage: STARTED FROM ONE AND HALF YEARS AGO FOR 6 MONTHS
     Route: 065
  15. LEVOTHYROXINE. [Concomitant]
     Active Substance: LEVOTHYROXINE
     Indication: HYPOTHYROIDISM
     Dosage: 75 UG, Q24H (ONSET: 15 YEARS AGO)
     Route: 048

REACTIONS (6)
  - Asthma [Not Recovered/Not Resolved]
  - Tremor [Unknown]
  - Choking [Unknown]
  - Malaise [Recovered/Resolved]
  - Off label use [Unknown]
  - Product prescribing error [Not Recovered/Not Resolved]

NARRATIVE: CASE EVENT DATE: 2011
